FAERS Safety Report 23080999 (Version 2)
Quarter: 2023Q4

REPORT INFORMATION
  Report Type: Spontaneous
  Country: US (occurrence: US)
  Receive Date: 20231018
  Receipt Date: 20231201
  Transmission Date: 20240110
  Serious: No
  Sender: FDA-Public Use
  Company Number: US-THERATECHNOLOGIES INC.-2023-THE-IBA-000412

PATIENT

DRUGS (1)
  1. TROGARZO [Suspect]
     Active Substance: IBALIZUMAB-UIYK
     Indication: HIV infection
     Dosage: 2000 MG, BIWEEKLY
     Route: 065
     Dates: start: 202304

REACTIONS (3)
  - Somnolence [Unknown]
  - Fatigue [Unknown]
  - Weight increased [Not Recovered/Not Resolved]
